FAERS Safety Report 8090164-3 (Version None)
Quarter: 2012Q1

REPORT INFORMATION
  Report Type: 
  Country: None (occurrence: None)
  Receive Date: 20120129
  Receipt Date: 20111019
  Transmission Date: 20120608
  Serious: No
  Sender: FDA-Public Use
  Company Number: US-ABBOTT-11P-163-0866621-00

PATIENT
  Age: 65 Year
  Sex: Female

DRUGS (8)
  1. IBUPROFEN (ADVIL) [Concomitant]
     Indication: PAIN
  2. ESTRACE [Concomitant]
     Indication: INSOMNIA
  3. AMBIEN [Concomitant]
     Indication: INSOMNIA
     Dosage: AT BEDTIME
  4. ESTRACE [Concomitant]
     Indication: HORMONE REPLACEMENT THERAPY
  5. CLARITIN [Concomitant]
     Indication: HYPERSENSITIVITY
  6. HUMIRA [Suspect]
     Indication: ANKYLOSING SPONDYLITIS
     Dates: start: 20111013
  7. ESTRACE [Concomitant]
     Indication: BACK DISORDER
  8. BENADRYL [Concomitant]
     Indication: HYPERSENSITIVITY

REACTIONS (2)
  - PAIN [None]
  - FATIGUE [None]
